FAERS Safety Report 12130580 (Version 1)
Quarter: 2016Q1

REPORT INFORMATION
  Report Type: Spontaneous
  Country: US (occurrence: None)
  Receive Date: 20160229
  Receipt Date: 20160229
  Transmission Date: 20160526
  Serious: No
  Sender: FDA-Public Use
  Company Number: None

PATIENT
  Age: 26 Year
  Sex: Female
  Weight: 66.23 kg

DRUGS (7)
  1. VICODEN [Concomitant]
  2. PENICILLIN VK [Suspect]
     Active Substance: PENICILLIN V POTASSIUM
     Indication: INFECTION
     Dosage: 1 PILL/8 HOURS THREE TIMES DAILY TAKEN BY MOUTH
     Route: 048
     Dates: start: 20160223
  3. EFFEXOR [Concomitant]
     Active Substance: VENLAFAXINE HYDROCHLORIDE
  4. XANAX [Concomitant]
     Active Substance: ALPRAZOLAM
  5. IBUPROFEN. [Concomitant]
     Active Substance: IBUPROFEN
  6. TRAZODONE [Concomitant]
     Active Substance: TRAZODONE HYDROCHLORIDE
  7. TYLENOL [Concomitant]
     Active Substance: ACETAMINOPHEN

REACTIONS (5)
  - Burning sensation [None]
  - Vaginal haemorrhage [None]
  - Vulvovaginal discomfort [None]
  - Vaginal discharge [None]
  - Vulvovaginal pruritus [None]

NARRATIVE: CASE EVENT DATE: 20160227
